FAERS Safety Report 15348475 (Version 1)
Quarter: 2018Q3

REPORT INFORMATION
  Report Type: Spontaneous
  Country: US (occurrence: US)
  Receive Date: 20180829
  Receipt Date: 20180829
  Transmission Date: 20181010
  Serious: Yes (Hospitalization)
  Sender: FDA-Public Use
  Company Number: None

PATIENT
  Age: 62 Year
  Sex: Female

DRUGS (1)
  1. CAPECITABINE TAB [Suspect]
     Active Substance: CAPECITABINE
     Dates: start: 20180329

REACTIONS (5)
  - Abdominal pain [None]
  - Pneumonia [None]
  - Pyrexia [None]
  - Bacteraemia [None]
  - Colitis [None]

NARRATIVE: CASE EVENT DATE: 20180826
